FAERS Safety Report 14001030 (Version 2)
Quarter: 2017Q3

REPORT INFORMATION
  Report Type: Report from Study
  Country: KR (occurrence: KR)
  Receive Date: 20170922
  Receipt Date: 20170925
  Transmission Date: 20171128
  Serious: Yes (Hospitalization)
  Sender: FDA-Public Use
  Company Number: KR-ASTRAZENECA-2017SE96786

PATIENT
  Age: 21904 Day
  Sex: Male

DRUGS (4)
  1. ATACAND [Concomitant]
     Active Substance: CANDESARTAN CILEXETIL
     Indication: ADVERSE EVENT
     Dates: start: 20170106
  2. EKLIRA GENUAIR [Suspect]
     Active Substance: ACLIDINIUM BROMIDE
     Indication: CHRONIC OBSTRUCTIVE PULMONARY DISEASE
     Route: 055
     Dates: start: 20161111
  3. CONCOR [Concomitant]
     Active Substance: BISOPROLOL FUMARATE
     Indication: ADVERSE EVENT
     Dates: start: 20170106
  4. DICAMAX [Concomitant]
     Indication: ADVERSE EVENT
     Dates: start: 20150728

REACTIONS (1)
  - Hip arthroplasty [Recovered/Resolved]

NARRATIVE: CASE EVENT DATE: 20161116
